FAERS Safety Report 8812990 (Version 1)
Quarter: 2012Q4

REPORT INFORMATION
  Report Type: 
  Country: US (occurrence: US)
  Receive Date: 20120927
  Receipt Date: 20120927
  Transmission Date: 20130627
  Serious: No
  Sender: FDA-Public Use
  Company Number: US-AMGEN-USASP2012036129

PATIENT
  Age: 76 Year
  Sex: Female
  Weight: 66.21 kg

DRUGS (6)
  1. XGEVA [Suspect]
     Indication: BREAST CANCER
     Dosage: 120 mg, qmo
     Dates: start: 20120213
  2. PROCRIT [Concomitant]
     Dosage: UNK
  3. AVASTIN [Concomitant]
     Indication: LUNG NEOPLASM MALIGNANT
     Dosage: UNK
     Route: 042
     Dates: start: 20120507
  4. ALIMTA [Concomitant]
     Indication: LUNG NEOPLASM MALIGNANT
     Dosage: UNK
     Route: 042
     Dates: start: 20120213
  5. CARBO [Concomitant]
     Indication: LUNG NEOPLASM MALIGNANT
     Dosage: UNK
     Route: 042
     Dates: start: 20120213
  6. NEULASTA [Concomitant]
     Indication: NEUTROPENIA
     Dosage: UNK
     Route: 058
     Dates: start: 20120214

REACTIONS (1)
  - Paraesthesia [Recovered/Resolved]
